FAERS Safety Report 8472015-8 (Version None)
Quarter: 2012Q2

REPORT INFORMATION
  Report Type: 
  Country: None (occurrence: None)
  Receive Date: 20120627
  Receipt Date: 20120618
  Transmission Date: 20120825
  Serious: Yes (Hospitalization)
  Sender: FDA-Public Use
  Company Number: BR-ASTRAZENECA-2012SE40725

PATIENT
  Age: 61 Year
  Sex: Female

DRUGS (8)
  1. UNSPECIFIED [Concomitant]
     Indication: RENAL DISORDER
     Route: 048
     Dates: start: 19730101
  2. UNKNOWN [Suspect]
     Indication: BIPOLAR DISORDER
     Route: 048
     Dates: start: 20120401
  3. SEROQUEL XR [Suspect]
     Route: 048
  4. CLONAZEPAM [Concomitant]
     Indication: ANXIETY
     Dosage: BID
     Route: 048
  5. ANASTROZOLE [Suspect]
     Indication: BREAST CANCER
     Dosage: DAILY
     Route: 048
     Dates: start: 20100101
  6. UNSPECIFIED [Concomitant]
     Indication: LIVER DISORDER
     Route: 048
     Dates: start: 19730101
  7. LAMOTRIGINE [Concomitant]
     Route: 048
     Dates: start: 20100101
  8. SEROQUEL XR [Suspect]
     Indication: BIPOLAR DISORDER
     Route: 048
     Dates: start: 20120401

REACTIONS (6)
  - BIPOLAR DISORDER [None]
  - SELF ESTEEM DECREASED [None]
  - BREAST INFECTION [None]
  - MEMORY IMPAIRMENT [None]
  - LOGORRHOEA [None]
  - OFF LABEL USE [None]
